FAERS Safety Report 8917687 (Version 1)
Quarter: 2012Q4

REPORT INFORMATION
  Report Type: 
  Country: US (occurrence: US)
  Receive Date: 20121119
  Receipt Date: 20121119
  Transmission Date: 20130627
  Serious: No
  Sender: FDA-Public Use
  Company Number: US-009507513-1211USA004998

PATIENT
  Age: 32 Year
  Sex: Female
  Weight: 54.42 kg

DRUGS (3)
  1. CLARITIN-D 24 HOUR [Suspect]
     Indication: SEASONAL ALLERGY
     Dosage: 10 mg, Once
     Route: 048
     Dates: start: 20120916
  2. CLARITIN-D 24 HOUR [Suspect]
     Dosage: 10 mg, qd
     Route: 048
     Dates: start: 20120911
  3. BENADRYL [Concomitant]
     Indication: SEASONAL ALLERGY
     Dosage: UNK, Unknown
     Dates: start: 20120915

REACTIONS (4)
  - Feeling hot [Not Recovered/Not Resolved]
  - Hyperhidrosis [Not Recovered/Not Resolved]
  - Accidental overdose [Unknown]
  - Drug effect decreased [Unknown]
